FAERS Safety Report 21903013 (Version 6)
Quarter: 2023Q2

REPORT INFORMATION
  Report Type: Report from Study
  Country: BR (occurrence: None)
  Receive Date: 20230124
  Receipt Date: 20230413
  Transmission Date: 20230722
  Serious: Yes (Hospitalization)
  Sender: FDA-Public Use
  Company Number: BR-ROCHE-3266217

PATIENT
  Age: 83 Year
  Sex: Male
  Weight: 67.5 kg

DRUGS (11)
  1. MOSUNETUZUMAB [Suspect]
     Active Substance: MOSUNETUZUMAB
     Indication: Follicular lymphoma
     Dosage: START DATE OF MOST RECENT DOSE (2 MG) OF STUDY DRUG PRIOR TO SAE: 13/DEC/2022 9:43 AM TO 1:43 PM
     Route: 042
     Dates: start: 20221206
  2. MESIDOX [Concomitant]
     Indication: Benign prostatic hyperplasia
     Route: 048
     Dates: start: 2015
  3. LOSARTAN [Concomitant]
     Active Substance: LOSARTAN
     Indication: Hypertension
     Route: 048
     Dates: start: 2012
  4. CITALOPRAM [Concomitant]
     Active Substance: CITALOPRAM HYDROBROMIDE
     Indication: Depression
     Route: 048
     Dates: start: 2020
  5. ACYCLOVIR [Concomitant]
     Active Substance: ACYCLOVIR
     Indication: Antiviral prophylaxis
     Route: 048
     Dates: start: 20221205
  6. BACTRIM [Concomitant]
     Active Substance: SULFAMETHOXAZOLE\TRIMETHOPRIM
     Indication: Prophylaxis
     Route: 048
     Dates: start: 20221205
  7. ALLOPURINOL [Concomitant]
     Active Substance: ALLOPURINOL
     Indication: Antiviral prophylaxis
     Route: 048
     Dates: start: 20221203, end: 20230107
  8. METFORMIN [Concomitant]
     Active Substance: METFORMIN HYDROCHLORIDE
     Indication: Diabetes mellitus
     Route: 048
     Dates: start: 2019
  9. ASPIRIN [Concomitant]
     Active Substance: ASPIRIN
     Indication: Thrombosis prophylaxis
     Route: 048
     Dates: start: 202301
  10. AZITHROMYCIN [Concomitant]
     Active Substance: AZITHROMYCIN
     Indication: COVID-19
     Route: 048
     Dates: start: 20230103, end: 20230107
  11. LORATADINE [Concomitant]
     Active Substance: LORATADINE
     Indication: COVID-19
     Route: 048
     Dates: start: 20230103, end: 20230107

REACTIONS (1)
  - COVID-19 [Recovered/Resolved]

NARRATIVE: CASE EVENT DATE: 20230114
